FAERS Safety Report 8590806-X (Version None)
Quarter: 2012Q3

REPORT INFORMATION
  Report Type: 
  Country: None (occurrence: None)
  Receive Date: 20120731
  Receipt Date: 20120719
  Transmission Date: 20120928
  Serious: Yes (Disabling)
  Sender: FDA-Public Use
  Company Number: 1356105

PATIENT
  Age: 63 Year
  Sex: Female
  Weight: 45.7226 kg

DRUGS (5)
  1. DOCETAXEL [Suspect]
     Indication: BREAST CANCER
     Dosage: 100 MG/M 2 MILLIGRAM(S)/SQ, METER, (UNKNOWN) 75 MG/M 2 MILLIGRAM(S)/SQ. METER (UNKNOWN)
     Route: 042
     Dates: end: 20120524
  2. DOCETAXEL [Suspect]
     Indication: BREAST CANCER
     Dosage: 100 MG/M 2 MILLIGRAM(S)/SQ, METER, (UNKNOWN) 75 MG/M 2 MILLIGRAM(S)/SQ. METER (UNKNOWN)
     Route: 042
     Dates: start: 20100430
  3. DEXAMETASON [Concomitant]
  4. HERCEPTIN [Concomitant]
  5. TINZAPARIN [Concomitant]

REACTIONS (3)
  - PAIN [None]
  - LEG AMPUTATION [None]
  - NECROTISING FASCIITIS [None]
